FAERS Safety Report 4653422-8 (Version None)
Quarter: 2005Q2

REPORT INFORMATION
  Report Type: 
  Country: None (occurrence: None)
  Receive Date: 20050505
  Receipt Date: 20050425
  Transmission Date: 20051028
  Serious: Yes (Hospitalization)
  Sender: FDA-Public Use
  Company Number: SE-GLAXOSMITHKLINE-B0379102A

PATIENT
  Age: 14 Year
  Sex: Female

DRUGS (1)
  1. ACETAMINOPHEN [Suspect]
     Route: 048

REACTIONS (3)
  - HYPERSENSITIVITY [None]
  - LIP PAIN [None]
  - URTICARIA [None]
